FAERS Safety Report 11701229 (Version 1)
Quarter: 2015Q4

REPORT INFORMATION
  Report Type: Other
  Country: CZ (occurrence: CZ)
  Receive Date: 20151105
  Receipt Date: 20151105
  Transmission Date: 20160304
  Serious: Yes (Life-Threatening, Other)
  Sender: FDA-Public Use
  Company Number: CZ-MYLANLABS-2015M1036497

PATIENT

DRUGS (2)
  1. PACLITAXEL MYLAN 6 MG/ML [Suspect]
     Active Substance: PACLITAXEL
     Indication: OVARIAN CANCER
     Dosage: UNK
     Route: 041
  2. CARBOPLATIN HOSPIRA 10 MG/ML KONCENTR?T PRO INFUZN? ROZTOK [Concomitant]
     Dosage: UNK
     Route: 041
     Dates: start: 20151001, end: 20151001

REACTIONS (5)
  - Cyanosis [Recovered/Resolved]
  - Oxygen saturation decreased [Recovered/Resolved]
  - Back pain [Recovered/Resolved]
  - Blood pressure decreased [Recovered/Resolved]
  - Hypersensitivity [Recovered/Resolved]

NARRATIVE: CASE EVENT DATE: 20151001
